FAERS Safety Report 10533313 (Version 3)
Quarter: 2014Q4

REPORT INFORMATION
  Report Type: Spontaneous
  Country: DE (occurrence: None)
  Receive Date: 20141020
  Receipt Date: 20141119
  Transmission Date: 20150529
  Serious: Yes (Congenital Anomaly)
  Sender: FDA-Public Use
  Company Number: HRA-CDB20140183

PATIENT

DRUGS (2)
  1. ELLAONE 30 MG TABLETTE (ELLAONE) (ULIPRISTAL ACETATE) [Suspect]
     Active Substance: ULIPRISTAL ACETATE
     Indication: EXPOSURE DURING PREGNANCY
     Route: 064
     Dates: start: 20130720
  2. L-THYROXIN [Concomitant]
     Active Substance: LEVOTHYROXINE SODIUM

REACTIONS (9)
  - Maternal drugs affecting foetus [None]
  - Cleft palate [None]
  - De Lange^s syndrome [None]
  - Fallot^s tetralogy [None]
  - Limb reduction defect [None]
  - Duodenal stenosis [None]
  - Syndactyly [None]
  - Hypospadias [None]
  - Double outlet right ventricle [None]

NARRATIVE: CASE EVENT DATE: 201402
